FAERS Safety Report 21103557 (Version 2)
Quarter: 2022Q3

REPORT INFORMATION
  Report Type: Spontaneous
  Country: US (occurrence: None)
  Receive Date: 20220720
  Receipt Date: 20220909
  Transmission Date: 20221026
  Serious: No
  Sender: FDA-Public Use
  Company Number: US-FARMAPROD-202201-0166

PATIENT
  Age: 73 Year
  Sex: Male

DRUGS (28)
  1. OXERVATE [Suspect]
     Active Substance: CENEGERMIN-BKBJ
     Indication: Neurotrophic keratopathy
     Route: 047
     Dates: start: 20220125
  2. OXERVATE [Suspect]
     Active Substance: CENEGERMIN-BKBJ
     Indication: Hypoaesthesia eye
  3. BRIMONIDINE TARTRATE [Concomitant]
     Active Substance: BRIMONIDINE TARTRATE
  4. FLUOROMETHOLONE [Concomitant]
     Active Substance: FLUOROMETHOLONE
  5. VIGAMOX [Concomitant]
     Active Substance: MOXIFLOXACIN HYDROCHLORIDE
  6. VALACYCLOVIR [Concomitant]
     Active Substance: VALACYCLOVIR HYDROCHLORIDE
  7. COSOPT [Concomitant]
     Active Substance: DORZOLAMIDE HYDROCHLORIDE\TIMOLOL MALEATE
     Dosage: 22.3-6.8/1
  8. ZIOPTAN [Concomitant]
     Active Substance: TAFLUPROST
  9. VANCOMYCIN HYDROCHLORIDE [Concomitant]
     Active Substance: VANCOMYCIN HYDROCHLORIDE
  10. BACITRACIN [Concomitant]
     Active Substance: BACITRACIN
     Dosage: 500 UNIT/G
  11. CEFTAZIDIME [Concomitant]
     Active Substance: CEFTAZIDIME
  12. VORICONAZOLE [Concomitant]
     Active Substance: VORICONAZOLE
  13. PREDNISOLONE-NEPAFENAC [Concomitant]
  14. SIMVASTATIN [Concomitant]
     Active Substance: SIMVASTATIN
  15. MULTIVITAMIN 50 PLUS [Concomitant]
  16. FISH OIL [Concomitant]
     Active Substance: FISH OIL
  17. HYDROCHLOROTHIAZIDE [Concomitant]
     Active Substance: HYDROCHLOROTHIAZIDE
  18. METOPROLOL SUCCINATE [Concomitant]
     Active Substance: METOPROLOL SUCCINATE
  19. IBUPROFEN [Concomitant]
     Active Substance: IBUPROFEN
  20. VITAMIN D3 [Concomitant]
     Active Substance: CHOLECALCIFEROL
  21. DOXYCYCLINE HYCLATE [Concomitant]
     Active Substance: DOXYCYCLINE HYCLATE
  22. LISINOPRIL [Concomitant]
     Active Substance: LISINOPRIL
  23. ASPIRIN [Concomitant]
     Active Substance: ASPIRIN
  24. VITAMIN C [Concomitant]
     Active Substance: ASCORBIC ACID
  25. GABAPENTIN [Concomitant]
     Active Substance: GABAPENTIN
  26. METFORMIN HYDROCHLORIDE [Concomitant]
     Active Substance: METFORMIN HYDROCHLORIDE
  27. OMEPRAZOLE [Concomitant]
     Active Substance: OMEPRAZOLE
  28. JARDIANCE [Concomitant]
     Active Substance: EMPAGLIFLOZIN

REACTIONS (3)
  - Periorbital pain [Recovering/Resolving]
  - Eye pain [Recovering/Resolving]
  - Intentional product misuse [Unknown]

NARRATIVE: CASE EVENT DATE: 20220126
